FAERS Safety Report 8731707 (Version 2)
Quarter: 2012Q4

REPORT INFORMATION
  Report Type: 
  Country: IT (occurrence: IT)
  Receive Date: 20120820
  Receipt Date: 20121126
  Transmission Date: 20130627
  Serious: Yes (Other)
  Sender: FDA-Public Use
  Company Number: IT-PFIZER INC-2012200760

PATIENT
  Age: 35 Year
  Sex: Female

DRUGS (1)
  1. XANAX [Suspect]
     Dosage: 8 DF, total
     Route: 048
     Dates: start: 20120716, end: 20120716

REACTIONS (3)
  - Drug abuse [Recovering/Resolving]
  - Alcohol abuse [Recovering/Resolving]
  - Depressed mood [Recovering/Resolving]
